FAERS Safety Report 6941783-6 (Version None)
Quarter: 2010Q3

REPORT INFORMATION
  Report Type: 
  Country: None (occurrence: None)
  Receive Date: 20100826
  Receipt Date: 20100819
  Transmission Date: 20110219
  Serious: No
  Sender: FDA-Public Use
  Company Number: 2010BI000378

PATIENT
  Age: 38 Year
  Sex: Female

DRUGS (1)
  1. TYSABRI [Suspect]
     Indication: MULTIPLE SCLEROSIS
     Route: 042
     Dates: start: 20090210

REACTIONS (4)
  - BLOOD PRESSURE INCREASED [None]
  - DEPRESSION [None]
  - DRUG INEFFECTIVE [None]
  - HEADACHE [None]
